FAERS Safety Report 8947579 (Version 1)
Quarter: 2012Q4

REPORT INFORMATION
  Report Type: 
  Country: FR (occurrence: FR)
  Receive Date: 20121205
  Receipt Date: 20121205
  Transmission Date: 20130627
  Serious: Yes (Hospitalization, Other)
  Sender: FDA-Public Use
  Company Number: FR-ELI_LILLY_AND_COMPANY-FR201211007302

PATIENT
  Age: 81 Year
  Sex: Female

DRUGS (7)
  1. ZYPREXA [Suspect]
     Indication: DELIRIUM
     Dosage: 10 mg, qd
     Route: 048
     Dates: end: 20120804
  2. LEXOMIL [Concomitant]
     Indication: ANXIETY
     Dosage: 6 mg, qd
     Route: 048
     Dates: end: 20120807
  3. TIAPRIDAL [Concomitant]
     Indication: DELIRIUM
     Dosage: 20 Gtt, tid
     Route: 048
     Dates: end: 20120804
  4. DEPAMIDE [Concomitant]
     Dosage: 300 mg, tid
     Route: 048
     Dates: end: 20120804
  5. NOCTAMIDE [Concomitant]
     Indication: SLEEP DISORDER
     Dosage: 0.5 mg, qd
     Route: 048
     Dates: end: 20120804
  6. DOLIPRANE [Concomitant]
     Dosage: 2 g, qd
     Dates: end: 20120804
  7. OMEPRAZOLE [Concomitant]
     Dosage: 20 mg, qd
     Dates: end: 20120804

REACTIONS (7)
  - Ischaemic cerebral infarction [Recovered/Resolved with Sequelae]
  - Infection [Unknown]
  - Disturbance in attention [Unknown]
  - Hemiplegia [Not Recovered/Not Resolved]
  - Convulsion [Unknown]
  - Aphasia [Not Recovered/Not Resolved]
  - Decreased appetite [Unknown]
